FAERS Safety Report 4881932-7 (Version None)
Quarter: 2006Q1

REPORT INFORMATION
  Report Type: 
  Country: None (occurrence: None)
  Receive Date: 20060111
  Receipt Date: 20060111
  Transmission Date: 20060701
  Serious: Yes (Hospitalization)
  Sender: FDA-Public Use
  Company Number: None

PATIENT
  Sex: Female
  Weight: 60.9 kg

DRUGS (7)
  1. PACLITAXEL [Suspect]
     Indication: BLADDER CANCER
     Dosage: 200MG/M2, D1, IV
     Route: 042
     Dates: start: 20050908, end: 20051128
  2. CARBOPLATIN [Suspect]
     Indication: BLADDER CANCER
     Dosage: 320MG,D1,IV
     Route: 042
     Dates: start: 20050908, end: 20051128
  3. GEMCITABINE [Suspect]
     Indication: BLADDER CANCER
     Dosage: 800MG/M2, D1,8,IV
     Route: 042
     Dates: start: 20050908, end: 20051206
  4. COUMADIN [Concomitant]
  5. LIPITOR [Concomitant]
  6. ASPIRIN [Concomitant]
  7. PLAVIX [Concomitant]

REACTIONS (2)
  - ARTERIAL THROMBOSIS LIMB [None]
  - DISEASE RECURRENCE [None]
